FAERS Safety Report 4458593-4 (Version None)
Quarter: 2004Q3

REPORT INFORMATION
  Report Type: 
  Country: None (occurrence: None)
  Receive Date: 20040917
  Receipt Date: 20031113
  Transmission Date: 20050211
  Serious: Yes (Other)
  Sender: FDA-Public Use
  Company Number: US-JNJFOC-20030803376

PATIENT
  Age: 47 Year
  Sex: Female
  Weight: 77.1115 kg

DRUGS (1)
  1. TOPAMAX [Suspect]
     Indication: HEADACHE
     Dosage: 100 MG, 2 IN 1 DAY, ORAL; 150 MG, IN 1 DAY, ORAL
     Route: 048
     Dates: start: 20030401

REACTIONS (10)
  - ABNORMAL SENSATION IN EYE [None]
  - ANXIETY [None]
  - DEPRESSION [None]
  - DYSPNOEA [None]
  - NASAL CONGESTION [None]
  - PHOBIA [None]
  - SINUS PAIN [None]
  - TREMOR [None]
  - UNEXPECTED THERAPEUTIC DRUG EFFECT [None]
  - WEIGHT DECREASED [None]
